FAERS Safety Report 5941164-8 (Version None)
Quarter: 2008Q4

REPORT INFORMATION
  Report Type: 
  Country: None (occurrence: None)
  Receive Date: 20081104
  Receipt Date: 20081023
  Transmission Date: 20090506
  Serious: Yes (Other)
  Sender: FDA-Public Use
  Company Number: US-PFIZER INC-2008082483

PATIENT
  Sex: Female
  Weight: 92.5 kg

DRUGS (9)
  1. CHANTIX [Suspect]
     Indication: SMOKING CESSATION THERAPY
     Dates: start: 20080724
  2. CITALOPRAM HYDROBROMIDE [Concomitant]
  3. ACETAZOLAMIDE [Concomitant]
  4. SUDAFED 12 HOUR [Concomitant]
  5. BACLOFEN [Concomitant]
  6. PRILOSEC [Concomitant]
  7. IBUPROFEN TABLETS [Concomitant]
  8. WELLBUTRIN [Concomitant]
  9. XANAX [Concomitant]

REACTIONS (1)
  - INTRACRANIAL PRESSURE INCREASED [None]
